FAERS Safety Report 6819810-6 (Version None)
Quarter: 2010Q3

REPORT INFORMATION
  Report Type: 
  Country: None (occurrence: None)
  Receive Date: 20100707
  Receipt Date: 20100629
  Transmission Date: 20110219
  Serious: Yes (Life-Threatening, Hospitalization)
  Sender: FDA-Public Use
  Company Number: FR-AMGEN-QUU421041

PATIENT
  Sex: Male
  Weight: 93 kg

DRUGS (3)
  1. NPLATE [Suspect]
     Indication: THROMBOCYTOPENIA
  2. PREVISCAN [Concomitant]
     Indication: PRODUCT USED FOR UNKNOWN INDICATION
  3. PLATELETS [Concomitant]
     Indication: PRODUCT USED FOR UNKNOWN INDICATION
     Route: 042

REACTIONS (1)
  - PULMONARY EMBOLISM [None]
